FAERS Safety Report 14167232 (Version 1)
Quarter: 2017Q4

REPORT INFORMATION
  Report Type: Spontaneous
  Country: US (occurrence: US)
  Receive Date: 20171107
  Receipt Date: 20171107
  Transmission Date: 20180321
  Serious: No
  Sender: FDA-Public Use
  Company Number: US-BAUSCH-BL-2017-007057

PATIENT
  Sex: Female

DRUGS (2)
  1. UCERIS [Suspect]
     Active Substance: BUDESONIDE
     Route: 048
  2. UCERIS [Suspect]
     Active Substance: BUDESONIDE
     Indication: COLITIS MICROSCOPIC
     Route: 048
     Dates: start: 201701

REACTIONS (7)
  - Off label use [Unknown]
  - Condition aggravated [Unknown]
  - Restlessness [Unknown]
  - Crying [Unknown]
  - Treatment noncompliance [Unknown]
  - Emotional distress [Unknown]
  - Psychiatric symptom [Unknown]
